FAERS Safety Report 15478221 (Version 6)
Quarter: 2018Q4

REPORT INFORMATION
  Report Type: Report from Study
  Country: BE (occurrence: BE)
  Receive Date: 20181009
  Receipt Date: 20181204
  Transmission Date: 20190205
  Serious: Yes (Hospitalization, Other)
  Sender: FDA-Public Use
  Company Number: BE-B.I. PHARMACEUTICALS,INC./RIDGEFIELD-2018-BI-040477

PATIENT
  Age: 49 Year
  Sex: Female
  Weight: 108.4 kg

DRUGS (12)
  1. PANTOMED (PANTOPRAZOLE SODIUM SESQUIHYDRATE) [Concomitant]
     Active Substance: PANTOPRAZOLE SODIUM
     Indication: PROPHYLAXIS
     Route: 048
  2. NINTEDANIB [Suspect]
     Active Substance: NINTEDANIB
     Route: 048
     Dates: end: 20181112
  3. NINTEDANIB [Suspect]
     Active Substance: NINTEDANIB
     Indication: ENDOMETRIAL CANCER RECURRENT
     Route: 048
     Dates: start: 20180712, end: 20181010
  4. PARACETAMOL [Concomitant]
     Active Substance: ACETAMINOPHEN
     Indication: EXOSTOSIS
     Route: 048
  5. CARBOPLATINE [Suspect]
     Active Substance: CARBOPLATIN
     Indication: ENDOMETRIAL CANCER RECURRENT
     Dosage: STRENGTH: 6AUC
     Route: 042
     Dates: start: 20180711
  6. TRADONAL [Concomitant]
     Active Substance: TRAMADOL HYDROCHLORIDE
     Indication: EXOSTOSIS
     Route: 048
  7. IBUPROFEN. [Concomitant]
     Active Substance: IBUPROFEN
     Indication: ARTHRALGIA
     Route: 065
  8. REPARIL-GEL [Concomitant]
     Indication: THROMBOPHLEBITIS
     Dosage: STRENGTH: 1%
     Route: 065
     Dates: start: 201808
  9. PARACETAMOL [Concomitant]
     Active Substance: ACETAMINOPHEN
     Indication: ARTHRALGIA
     Route: 065
  10. TRAMADOL RETARD [Concomitant]
     Active Substance: TRAMADOL
     Indication: ARTHRALGIA
     Route: 065
  11. PACLITAXEL. [Suspect]
     Active Substance: PACLITAXEL
     Indication: ENDOMETRIAL CANCER RECURRENT
     Dosage: TOTAL DAILY DOSE: 135MG/M^2
     Route: 042
     Dates: start: 20180711
  12. ZINCOTABS [Concomitant]
     Indication: DYSGEUSIA
     Route: 048
     Dates: start: 20180823

REACTIONS (4)
  - Febrile neutropenia [Recovered/Resolved]
  - Pancytopenia [Recovered/Resolved]
  - Diarrhoea [Recovered/Resolved]
  - Pancytopenia [Recovered/Resolved]

NARRATIVE: CASE EVENT DATE: 20180806
